FAERS Safety Report 25205276 (Version 1)
Quarter: 2025Q2

REPORT INFORMATION
  Report Type: Report from Study
  Country: DE (occurrence: DE)
  Receive Date: 20250417
  Receipt Date: 20250417
  Transmission Date: 20250716
  Serious: Yes (Hospitalization)
  Sender: AMGEN
  Company Number: DE-AMGEN-DEUNI2025073235

PATIENT
  Age: 59 Year
  Sex: Female

DRUGS (8)
  1. APREMILAST [Suspect]
     Active Substance: APREMILAST
     Indication: Psoriatic arthropathy
     Dosage: 60 MILLIGRAM, QD
     Route: 065
     Dates: start: 20200728
  2. BISOPROLOL [Concomitant]
     Active Substance: BISOPROLOL
  3. ATACAND [Concomitant]
     Active Substance: CANDESARTAN CILEXETIL
  4. IBUPROFEN [Concomitant]
     Active Substance: IBUPROFEN
  5. LERCANIDIPINE [Concomitant]
     Active Substance: LERCANIDIPINE
  6. PANTOPRAZOLE [Concomitant]
     Active Substance: PANTOPRAZOLE
  7. PREGABALIN [Concomitant]
     Active Substance: PREGABALIN
  8. VENLAFAXINE [Concomitant]
     Active Substance: VENLAFAXINE HYDROCHLORIDE

REACTIONS (2)
  - Postoperative wound infection [Recovered/Resolved]
  - Spinal stenosis [Recovered/Resolved]

NARRATIVE: CASE EVENT DATE: 20240604
